FAERS Safety Report 15921142 (Version 1)
Quarter: 2019Q1

REPORT INFORMATION
  Report Type: Spontaneous
  Country: US (occurrence: US)
  Receive Date: 20190205
  Receipt Date: 20190205
  Transmission Date: 20190417
  Serious: Yes (Other)
  Sender: FDA-Public Use
  Company Number: US-PFIZER INC-2019053970

PATIENT
  Age: 75 Year
  Sex: Female

DRUGS (3)
  1. OXYCODONE [Suspect]
     Active Substance: OXYCODONE
     Indication: PAIN MANAGEMENT
     Dosage: UNK
  2. KLONOPIN [Suspect]
     Active Substance: CLONAZEPAM
     Indication: PAIN MANAGEMENT
     Dosage: UNK
  3. GABAPENTIN. [Suspect]
     Active Substance: GABAPENTIN
     Indication: PAIN MANAGEMENT
     Dosage: UNK

REACTIONS (7)
  - Intentional product misuse [Unknown]
  - Drug withdrawal syndrome [Unknown]
  - Skin disorder [Unknown]
  - Drug ineffective for unapproved indication [Unknown]
  - Drug dependence [Unknown]
  - Abnormal behaviour [Unknown]
  - Weight decreased [Unknown]
